FAERS Safety Report 21524629 (Version 1)
Quarter: 2022Q4

REPORT INFORMATION
  Report Type: Spontaneous
  Country: CA (occurrence: CA)
  Receive Date: 20221030
  Receipt Date: 20221030
  Transmission Date: 20230113
  Serious: Yes (Hospitalization)
  Sender: FDA-Public Use
  Company Number: CA-BoehringerIngelheim-2022-BI-199878

PATIENT
  Age: 76 Year
  Sex: Male
  Weight: 87 kg

DRUGS (10)
  1. SYNJARDY [Suspect]
     Active Substance: EMPAGLIFLOZIN\METFORMIN HYDROCHLORIDE
     Indication: Type 2 diabetes mellitus
     Dosage: DOSE 1.0 DOSAGE FORMS
     Route: 048
  2. ACETAMINOPHEN [Concomitant]
     Active Substance: ACETAMINOPHEN
     Indication: Product used for unknown indication
  3. BUPROPION [Concomitant]
     Active Substance: BUPROPION
     Indication: Product used for unknown indication
     Dosage: EXTENDED-RELEASE
  4. COUMADIN [Concomitant]
     Active Substance: WARFARIN SODIUM
     Indication: Product used for unknown indication
  5. HABITROL [Concomitant]
     Active Substance: NICOTINE
     Indication: Product used for unknown indication
     Dosage: FORM: PATCH
  6. INDERAL LA [Concomitant]
     Active Substance: PROPRANOLOL HYDROCHLORIDE
     Indication: Product used for unknown indication
     Dosage: SUSTAINED-RELEASE
  7. INSPIOLTO RESPIMAT FOR ORAL INHALATION.WITH INSPIOLTORESPIMAT INHALER [Concomitant]
     Indication: Product used for unknown indication
     Route: 048
  8. NICODERM(R) 7 MG STEP3 [Concomitant]
     Indication: Product used for unknown indication
     Dosage: FORM: PATCH
  9. SEMAGLUTIDE [Concomitant]
     Active Substance: SEMAGLUTIDE
     Indication: Product used for unknown indication
  10. SYNTHROID [Concomitant]
     Active Substance: LEVOTHYROXINE SODIUM
     Indication: Product used for unknown indication

REACTIONS (6)
  - Fungal infection [Recovered/Resolved]
  - Hydroureter [Recovered/Resolved]
  - Pyrexia [Recovered/Resolved]
  - Ureterolithiasis [Recovered/Resolved]
  - Urinary tract candidiasis [Recovered/Resolved]
  - White blood cell count increased [Recovered/Resolved]
